FAERS Safety Report 6968506-9 (Version None)
Quarter: 2010Q3

REPORT INFORMATION
  Report Type: 
  Country: None (occurrence: None)
  Receive Date: 20100907
  Receipt Date: 20100826
  Transmission Date: 20110219
  Serious: Yes (Other)
  Sender: FDA-Public Use
  Company Number: US-JNJFOC-20100208969

PATIENT
  Sex: Female
  Weight: 44 kg

DRUGS (5)
  1. TOPAMAX [Suspect]
     Indication: PRODUCT USED FOR UNKNOWN INDICATION
     Dosage: 25 MG IN AM/50 MG IN PM
     Route: 048
  2. MICRONOR [Suspect]
     Indication: CONTRACEPTION
     Route: 065
  3. CELEXA [Suspect]
     Indication: PRODUCT USED FOR UNKNOWN INDICATION
     Route: 048
  4. BENTYL [Suspect]
     Indication: IRRITABLE BOWEL SYNDROME
     Route: 048
  5. CORTISONE CREAM [Concomitant]
     Indication: RASH ERYTHEMATOUS
     Route: 061

REACTIONS (3)
  - ASTHENIA [None]
  - LUPUS-LIKE SYNDROME [None]
  - MYALGIA [None]
